FAERS Safety Report 15820214 (Version 1)
Quarter: 2019Q1

REPORT INFORMATION
  Report Type: Spontaneous
  Country: US (occurrence: US)
  Receive Date: 20190114
  Receipt Date: 20190114
  Transmission Date: 20190417
  Serious: No
  Sender: FDA-Public Use
  Company Number: US-009507513-1901USA003668

PATIENT
  Age: 42 Year
  Sex: Female
  Weight: 119.73 kg

DRUGS (1)
  1. NEXPLANON [Suspect]
     Active Substance: ETONOGESTREL
     Indication: CONTRACEPTION
     Dosage: ONE IMPLANT IN THE LEFT ARM FOR THREE YEARS
     Route: 059
     Dates: start: 20140221

REACTIONS (1)
  - Incorrect product administration duration [Unknown]

NARRATIVE: CASE EVENT DATE: 20170221
